FAERS Safety Report 8276376-4 (Version None)
Quarter: 2012Q2

REPORT INFORMATION
  Report Type: 
  Country: None (occurrence: None)
  Receive Date: 20120412
  Receipt Date: 20120402
  Transmission Date: 20120825
  Serious: Yes (Hospitalization, Other)
  Sender: FDA-Public Use
  Company Number: US-SANOFI-AVENTIS-2012SA021794

PATIENT
  Age: 57 Year
  Sex: Female

DRUGS (6)
  1. LOVENOX [Suspect]
     Indication: PULMONARY EMBOLISM
     Dates: start: 20050101, end: 20110701
  2. LOVENOX [Suspect]
     Dates: start: 20050101, end: 20110701
  3. LOVENOX [Suspect]
     Dates: start: 20110701
  4. LOVENOX [Suspect]
     Dates: start: 20110701
  5. ASPIRIN [Concomitant]
  6. PREDNISONE TAB [Concomitant]

REACTIONS (26)
  - RENAL FAILURE [None]
  - HAEMATOCRIT DECREASED [None]
  - HAEMORRHAGE [None]
  - CONDITION AGGRAVATED [None]
  - NERVOUS SYSTEM DISORDER [None]
  - ENDOCARDITIS BACTERIAL [None]
  - PLATELET COUNT DECREASED [None]
  - PARAESTHESIA [None]
  - MEMORY IMPAIRMENT [None]
  - CONTUSION [None]
  - SYSTEMIC LUPUS ERYTHEMATOSUS [None]
  - DEEP VEIN THROMBOSIS [None]
  - ANAEMIA [None]
  - METABOLIC DISORDER [None]
  - UNEVALUABLE EVENT [None]
  - BLOOD CREATININE INCREASED [None]
  - MUSCULAR WEAKNESS [None]
  - CONFUSIONAL STATE [None]
  - HYPOAESTHESIA [None]
  - BODY TEMPERATURE INCREASED [None]
  - HYPOTENSION [None]
  - HAEMOGLOBIN DECREASED [None]
  - OEDEMA PERIPHERAL [None]
  - HEADACHE [None]
  - DIARRHOEA [None]
  - HAEMATOMA [None]
